FAERS Safety Report 6789683-9 (Version None)
Quarter: 2010Q2

REPORT INFORMATION
  Report Type: 
  Country: None (occurrence: None)
  Receive Date: 20100624
  Receipt Date: 20100611
  Transmission Date: 20101027
  Serious: Yes (Other)
  Sender: FDA-Public Use
  Company Number: US-RB-012000-10

PATIENT
  Age: 69 Year
  Sex: Female

DRUGS (1)
  1. DELSYM [Suspect]
     Dosage: TOOK 10 ML OF THE PRODUCT ONCE
     Route: 048
     Dates: start: 20100609

REACTIONS (3)
  - BLOOD PRESSURE INCREASED [None]
  - ERYTHEMA [None]
  - FEELING HOT [None]
